FAERS Safety Report 9231792 (Version 2)
Quarter: 2014Q2

REPORT INFORMATION
  Report Type: Spontaneous
  Country: US (occurrence: US)
  Receive Date: 20130415
  Receipt Date: 20140408
  Transmission Date: 20141212
  Serious: Yes (Other)
  Sender: FDA-Public Use
  Company Number: US-TEVA-397336USA

PATIENT
  Age: 54 Year
  Sex: Female

DRUGS (6)
  1. NUVIGIL [Suspect]
     Indication: NARCOLEPSY
     Route: 065
  2. NUVIGIL [Suspect]
     Indication: SLEEP APNOEA SYNDROME
  3. NUVIGIL [Suspect]
     Indication: SOMNOLENCE
  4. PREDNISONE [Concomitant]
     Indication: IMMUNOSUPPRESSANT DRUG THERAPY
     Route: 065
  5. TACROLIMUS [Concomitant]
     Indication: IMMUNOSUPPRESSANT DRUG THERAPY
     Route: 065
  6. AZATHIOPRINE [Concomitant]
     Indication: IMMUNOSUPPRESSANT DRUG THERAPY
     Route: 065

REACTIONS (1)
  - Tubulointerstitial nephritis [Recovered/Resolved]
